FAERS Safety Report 5388272-0 (Version None)
Quarter: 2007Q3

REPORT INFORMATION
  Report Type: 
  Country: None (occurrence: None)
  Receive Date: 20070716
  Receipt Date: 20070308
  Transmission Date: 20080115
  Serious: No
  Sender: FDA-Public Use
  Company Number: A0642282A

PATIENT
  Age: 52 Year
  Sex: Female

DRUGS (1)
  1. NICORETTE [Suspect]
     Dates: end: 20070306

REACTIONS (2)
  - CHEST PAIN [None]
  - INTENTIONAL DRUG MISUSE [None]
